FAERS Safety Report 25622786 (Version 1)
Quarter: 2025Q3

REPORT INFORMATION
  Report Type: Spontaneous
  Country: TW (occurrence: TW)
  Receive Date: 20250730
  Receipt Date: 20250730
  Transmission Date: 20251021
  Serious: Yes (Life-Threatening)
  Sender: FRESENIUS KABI
  Company Number: TW-FreseniusKabi-FK202510229

PATIENT
  Age: 55 Year
  Sex: Female

DRUGS (6)
  1. PACLITAXEL [Suspect]
     Active Substance: PACLITAXEL
     Indication: Triple negative breast cancer
     Dates: start: 20250616
  2. PACLITAXEL [Suspect]
     Active Substance: PACLITAXEL
     Dates: start: 20250714, end: 20250718
  3. CARBOPLATIN [Concomitant]
     Active Substance: CARBOPLATIN
     Indication: Triple negative breast cancer
     Dates: start: 20250521
  4. CARBOPLATIN [Concomitant]
     Active Substance: CARBOPLATIN
     Dates: start: 20250616
  5. KEYTRUDA [Concomitant]
     Active Substance: PEMBROLIZUMAB
     Indication: Triple negative breast cancer
     Dates: start: 20250521
  6. KEYTRUDA [Concomitant]
     Active Substance: PEMBROLIZUMAB
     Dates: start: 20250616

REACTIONS (5)
  - Discomfort [Recovering/Resolving]
  - Dyspnoea [Recovering/Resolving]
  - Erythema [Recovering/Resolving]
  - Vomiting [Recovering/Resolving]
  - Hypotension [Recovering/Resolving]

NARRATIVE: CASE EVENT DATE: 20250714
